FAERS Safety Report 7933476-3 (Version None)
Quarter: 2011Q4

REPORT INFORMATION
  Report Type: 
  Country: None (occurrence: None)
  Receive Date: 20111118
  Receipt Date: 20111115
  Transmission Date: 20120403
  Serious: Yes (Other)
  Sender: FDA-Public Use
  Company Number: A0953199A

PATIENT
  Age: 41 Year
  Sex: Female

DRUGS (2)
  1. ASPIRIN + CAFFEINE + SALICYLAMIDE (ASPIRIN + CAFFEINE + SALICYLAMIDE) [Suspect]
  2. ASPIRIN + CAFFEINE (ASPIRIN + CAFFEINE) [Suspect]
     Dosage: ORAL
     Route: 048

REACTIONS (12)
  - EXPIRED DRUG ADMINISTERED [None]
  - NAUSEA [None]
  - HEADACHE [None]
  - DRUG ADMINISTRATION ERROR [None]
  - PSYCHOMOTOR HYPERACTIVITY [None]
  - PALPITATIONS [None]
  - DRUG DEPENDENCE [None]
  - FEELING JITTERY [None]
  - MALAISE [None]
  - CONDITION AGGRAVATED [None]
  - THERAPEUTIC RESPONSE UNEXPECTED [None]
  - FEELING ABNORMAL [None]
